FAERS Safety Report 7427986-5 (Version None)
Quarter: 2011Q2

REPORT INFORMATION
  Report Type: 
  Country: None (occurrence: None)
  Receive Date: 20110413
  Receipt Date: 20110330
  Transmission Date: 20111010
  Serious: Yes (Other)
  Sender: FDA-Public Use
  Company Number: 2011SP014715

PATIENT
  Sex: Female

DRUGS (1)
  1. NITRO-DUR [Suspect]
     Indication: PRODUCT USED FOR UNKNOWN INDICATION
     Dosage: ; QD;

REACTIONS (3)
  - SKIN EXFOLIATION [None]
  - MEDICATION ERROR [None]
  - WRONG TECHNIQUE IN DRUG USAGE PROCESS [None]
